FAERS Safety Report 9921203 (Version 1)
Quarter: 2014Q1

REPORT INFORMATION
  Report Type: Report from Study
  Country: US (occurrence: US)
  Receive Date: 20140225
  Receipt Date: 20140225
  Transmission Date: 20141002
  Serious: Yes (Death)
  Sender: FDA-Public Use
  Company Number: US-ROCHE-1336656

PATIENT
  Age: 63 Year
  Sex: Male

DRUGS (6)
  1. AVASTIN [Suspect]
     Indication: NON-SMALL CELL LUNG CANCER
     Route: 041
     Dates: start: 20110509
  2. AVASTIN [Suspect]
     Route: 041
     Dates: start: 20110523
  3. DECADRON [Concomitant]
     Route: 040
  4. ZOFRAN [Concomitant]
     Route: 040
     Dates: start: 20110502
  5. ALIMTA [Concomitant]
     Indication: NON-SMALL CELL LUNG CANCER
     Route: 041
     Dates: start: 20110502
  6. CARBOPLATIN [Concomitant]
     Indication: NON-SMALL CELL LUNG CANCER
     Route: 041
     Dates: start: 20110502

REACTIONS (5)
  - Death [Fatal]
  - Asthenia [Unknown]
  - Muscular weakness [Unknown]
  - Hypoacusis [Unknown]
  - Pain [Unknown]
